FAERS Safety Report 7412650-9 (Version None)
Quarter: 2011Q2

REPORT INFORMATION
  Report Type: 
  Country: None (occurrence: None)
  Receive Date: 20110413
  Receipt Date: 20110411
  Transmission Date: 20111010
  Serious: No
  Sender: FDA-Public Use
  Company Number: US-PFIZER INC-2011079637

PATIENT
  Sex: Male
  Weight: 81.633 kg

DRUGS (1)
  1. ZOSYN [Suspect]
     Dosage: UNK, 4X/DAY
     Route: 042
     Dates: start: 20110329, end: 20110403

REACTIONS (6)
  - INJECTION SITE PAIN [None]
  - DRUG INEFFECTIVE [None]
  - SKIN EXFOLIATION [None]
  - WHITE BLOOD CELL DISORDER [None]
  - SKIN DISCOLOURATION [None]
  - SKIN SWELLING [None]
